FAERS Safety Report 5877153-1 (Version None)
Quarter: 2008Q3

REPORT INFORMATION
  Report Type: 
  Country: None (occurrence: None)
  Receive Date: 20080910
  Receipt Date: 20080829
  Transmission Date: 20090109
  Serious: No
  Sender: FDA-Public Use
  Company Number: US-B.I. PHARMACEUTICALS,INC./RIDGEFIELD-2008-BP-13866BP

PATIENT
  Sex: Male

DRUGS (3)
  1. SPIRIVA [Suspect]
     Indication: CHRONIC OBSTRUCTIVE PULMONARY DISEASE
     Dosage: 18MCG
     Route: 055
     Dates: start: 20050101
  2. ACTOS [Concomitant]
     Indication: DIABETES MELLITUS
  3. GLIPISIDE [Concomitant]
     Indication: DIABETES MELLITUS

REACTIONS (2)
  - APHTHOUS STOMATITIS [None]
  - ORAL PUSTULE [None]
